FAERS Safety Report 5919258-2 (Version None)
Quarter: 2008Q4

REPORT INFORMATION
  Report Type: 
  Country: None (occurrence: None)
  Receive Date: 20081014
  Receipt Date: 20081014
  Transmission Date: 20090506
  Serious: Yes (Hospitalization)
  Sender: FDA-Public Use
  Company Number: None

PATIENT
  Age: 72 Year
  Sex: Male
  Weight: 68 kg

DRUGS (1)
  1. DICLOFENAC SODIUM [Suspect]
     Indication: NECK PAIN
     Dosage: 75 MG IM ONLY ONE APPLICATION
     Route: 030
     Dates: start: 20080827, end: 20080827

REACTIONS (2)
  - ERYTHEMA [None]
  - PRURITUS GENERALISED [None]
